FAERS Safety Report 12372202 (Version 5)
Quarter: 2016Q3

REPORT INFORMATION
  Report Type: Spontaneous
  Country: AU (occurrence: AU)
  Receive Date: 20160516
  Receipt Date: 20160815
  Transmission Date: 20161109
  Serious: Yes (Hospitalization, Other)
  Sender: FDA-Public Use
  Company Number: AU-PFIZER INC-2016140298

PATIENT
  Age: 52 Year
  Sex: Male

DRUGS (3)
  1. CAVERJECT [Suspect]
     Active Substance: ALPROSTADIL
     Indication: ERECTILE DYSFUNCTION
     Dosage: 5-7 UG, WEEKLY
     Dates: start: 20160210
  2. CAVERJECT [Suspect]
     Active Substance: ALPROSTADIL
     Dosage: UNK
  3. CAVERJECT IMPULSE [Suspect]
     Active Substance: ALPROSTADIL
     Dosage: 7.5 MG, UNK

REACTIONS (9)
  - Penile pain [Unknown]
  - Contusion [Unknown]
  - Product quality issue [Unknown]
  - Erection increased [Recovered/Resolved]
  - Penile swelling [Unknown]
  - Injection site bruising [Unknown]
  - Painful erection [Recovered/Resolved]
  - Drug ineffective [Unknown]
  - Injection site haemorrhage [Unknown]

NARRATIVE: CASE EVENT DATE: 20160221
